FAERS Safety Report 5065474-4 (Version None)
Quarter: 2006Q3

REPORT INFORMATION
  Report Type: 
  Country: None (occurrence: None)
  Receive Date: 20060731
  Receipt Date: 20060714
  Transmission Date: 20061208
  Serious: Yes (Hospitalization)
  Sender: FDA-Public Use
  Company Number: US-AVENTIS-200615919US

PATIENT
  Sex: Male
  Weight: 72.72 kg

DRUGS (3)
  1. KETEK [Suspect]
     Indication: SINUSITIS
     Dates: start: 20060114, end: 20060119
  2. ACETAMINOPHEN [Concomitant]
     Dosage: DOSE: UNK
  3. THERAFLU [Concomitant]
     Dosage: DOSE: UNK

REACTIONS (25)
  - ABDOMINAL PAIN [None]
  - ALANINE AMINOTRANSFERASE INCREASED [None]
  - ASPARTATE AMINOTRANSFERASE INCREASED [None]
  - BLOOD ALBUMIN DECREASED [None]
  - BLOOD ALKALINE PHOSPHATASE INCREASED [None]
  - BLOOD BILIRUBIN INCREASED [None]
  - BLOOD CHLORIDE DECREASED [None]
  - BLOOD GLUCOSE INCREASED [None]
  - BLOOD UREA DECREASED [None]
  - CHROMATURIA [None]
  - CHRONIC HEPATITIS [None]
  - FAECAL VOLUME DECREASED [None]
  - FAECES DISCOLOURED [None]
  - GALLBLADDER DISORDER [None]
  - HEPATIC STEATOSIS [None]
  - HEPATOCELLULAR DAMAGE [None]
  - INFLUENZA LIKE ILLNESS [None]
  - INTERNATIONAL NORMALISED RATIO DECREASED [None]
  - JAUNDICE [None]
  - MASS [None]
  - MICTURITION URGENCY [None]
  - NAUSEA [None]
  - ORAL INTAKE REDUCED [None]
  - RENAL CYST [None]
  - SERUM FERRITIN INCREASED [None]
